FAERS Safety Report 7592505-X (Version None)
Quarter: 2011Q2

REPORT INFORMATION
  Report Type: 
  Country: None (occurrence: None)
  Receive Date: 20110628
  Receipt Date: 20110614
  Transmission Date: 20111010
  Serious: Yes (Other)
  Sender: FDA-Public Use
  Company Number: 2011-1996

PATIENT
  Sex: Female

DRUGS (1)
  1. DYSPORT [Suspect]
     Indication: HYPERHIDROSIS
     Dosage: NOT REPORTED, SINGLE CYCLE,

REACTIONS (1)
  - MELANOMA RECURRENT [None]
